FAERS Safety Report 9981846 (Version 1)
Quarter: 2014Q1

REPORT INFORMATION
  Report Type: Spontaneous
  Country: US (occurrence: None)
  Receive Date: 20140127
  Receipt Date: 20140127
  Transmission Date: 20141002
  Serious: Yes (Hospitalization)
  Sender: FDA-Public Use
  Company Number: 1197875

PATIENT
  Age: 70 Year
  Sex: Male
  Weight: 70.3 kg

DRUGS (2)
  1. RITUXAN (RITUXIMAB) [Suspect]
     Indication: CHRONIC LYMPHOCYTIC LEUKAEMIA
     Dosage: 685 UNIT NOT REPORTED
     Route: 042
     Dates: start: 20121008, end: 20121105
  2. BENDAMUSTINE (BENDAMUSTINE) (BENDAMUSTINE) [Concomitant]

REACTIONS (1)
  - Sepsis [None]
